FAERS Safety Report 9681474 (Version 2)
Quarter: 2013Q4

REPORT INFORMATION
  Report Type: Spontaneous
  Country: DE (occurrence: DE)
  Receive Date: 20131111
  Receipt Date: 20131111
  Transmission Date: 20140711
  Serious: Yes (Life-Threatening, Other)
  Sender: FDA-Public Use
  Company Number: DE-BRISTOL-MYERS SQUIBB COMPANY-19539949

PATIENT
  Age: 56 Year
  Sex: Male

DRUGS (1)
  1. BARACLUDE [Suspect]
     Indication: CHRONIC HEPATITIS B
     Dosage: DOSAGE:STARTED:APPROXIMATELY 2011-2013
     Route: 048
     Dates: start: 201204, end: 2013

REACTIONS (1)
  - Hepatocellular carcinoma [Unknown]
